FAERS Safety Report 23792468 (Version 1)
Quarter: 2024Q2

REPORT INFORMATION
  Report Type: Spontaneous
  Country: CA (occurrence: CA)
  Receive Date: 20240429
  Receipt Date: 20240429
  Transmission Date: 20240716
  Serious: Yes (Other)
  Sender: FDA-Public Use
  Company Number: CA-SANDOZ-SDZ2024CA043260

PATIENT
  Sex: Female

DRUGS (10)
  1. TACROLIMUS [Suspect]
     Active Substance: TACROLIMUS
     Indication: Nephrotic syndrome
     Dosage: UNK
     Route: 065
  2. TACROLIMUS [Suspect]
     Active Substance: TACROLIMUS
     Indication: Focal segmental glomerulosclerosis
  3. CYCLOSPORINE [Concomitant]
     Active Substance: CYCLOSPORINE
     Indication: Nephrotic syndrome
     Dosage: UNK
     Route: 065
  4. CYCLOSPORINE [Concomitant]
     Active Substance: CYCLOSPORINE
     Indication: Focal segmental glomerulosclerosis
  5. MYCOPHENOLATE MOFETIL [Concomitant]
     Active Substance: MYCOPHENOLATE MOFETIL
     Indication: Nephrotic syndrome
     Dosage: UNK
     Route: 065
  6. MYCOPHENOLATE MOFETIL [Concomitant]
     Active Substance: MYCOPHENOLATE MOFETIL
     Indication: Focal segmental glomerulosclerosis
  7. PREDNISONE [Concomitant]
     Active Substance: PREDNISONE
     Indication: Nephrotic syndrome
     Dosage: UNK
     Route: 065
  8. PREDNISONE [Concomitant]
     Active Substance: PREDNISONE
     Indication: Focal segmental glomerulosclerosis
  9. RITUXIMAB [Concomitant]
     Active Substance: RITUXIMAB
     Indication: Nephrotic syndrome
     Dosage: UNK
     Route: 065
  10. RITUXIMAB [Concomitant]
     Active Substance: RITUXIMAB
     Indication: Focal segmental glomerulosclerosis

REACTIONS (8)
  - Pleurisy [Recovering/Resolving]
  - Polyomavirus viraemia [Recovering/Resolving]
  - Fungal peritonitis [Recovering/Resolving]
  - Klebsiella infection [Recovering/Resolving]
  - Peritonitis bacterial [Recovering/Resolving]
  - Pneumococcal infection [Recovering/Resolving]
  - Systemic candida [Recovering/Resolving]
  - Off label use [Recovering/Resolving]
